FAERS Safety Report 14394844 (Version 2)
Quarter: 2020Q1

REPORT INFORMATION
  Report Type: Spontaneous
  Country: US (occurrence: US)
  Receive Date: 20180116
  Receipt Date: 20200129
  Transmission Date: 20200409
  Serious: No
  Sender: FDA-Public Use
  Company Number: US-ALLERGAN-1703186US

PATIENT
  Sex: Female

DRUGS (15)
  1. ZOFRAN [Concomitant]
     Active Substance: ONDANSETRON HYDROCHLORIDE
     Indication: PRODUCT USED FOR UNKNOWN INDICATION
     Dosage: UNK
     Route: 048
  2. BOTOX COSMETIC [Suspect]
     Active Substance: ONABOTULINUMTOXINA
     Indication: SKIN WRINKLING
     Dosage: 42 UNITS, SINGLE
     Route: 030
     Dates: start: 20161215, end: 20161215
  3. OXYCODONE [Concomitant]
     Active Substance: OXYCODONE
     Indication: PAIN
     Dosage: UNK, TID
     Route: 048
  4. BOTOX COSMETIC [Suspect]
     Active Substance: ONABOTULINUMTOXINA
     Indication: SKIN WRINKLING
  5. BOTOX COSMETIC [Suspect]
     Active Substance: ONABOTULINUMTOXINA
     Indication: SKIN WRINKLING
  6. LIPITOR [Concomitant]
     Active Substance: ATORVASTATIN CALCIUM
     Indication: BLOOD TRIGLYCERIDES
     Dosage: UNK
     Route: 048
  7. BOTOX COSMETIC [Suspect]
     Active Substance: ONABOTULINUMTOXINA
     Indication: SKIN WRINKLING
  8. LISINOPRIL. [Concomitant]
     Active Substance: LISINOPRIL
     Indication: HYPERTENSION
     Dosage: UNK
     Route: 048
  9. CALCIUM [Concomitant]
     Active Substance: CALCIUM
     Indication: PRODUCT USED FOR UNKNOWN INDICATION
     Dosage: UNK
     Route: 048
  10. BELLAFILL [Concomitant]
     Active Substance: COLLAGEN\METHYL METHACRYLATE
     Indication: SKIN WRINKLING
     Dosage: UNK
     Route: 065
     Dates: start: 20161215, end: 20161215
  11. JUVEDERM VOLBELLA [Concomitant]
     Active Substance: HYALURONIC ACID
     Indication: SKIN WRINKLING
     Dosage: UNK
     Route: 058
     Dates: start: 20161215, end: 20161215
  12. PREMARIN [Concomitant]
     Active Substance: ESTROGENS, CONJUGATED
     Indication: HORMONE THERAPY
     Dosage: UNK
     Route: 048
  13. VITAMINS [Concomitant]
     Active Substance: VITAMINS
     Indication: PRODUCT USED FOR UNKNOWN INDICATION
     Dosage: UNK
     Route: 048
  14. NOVA PDO THREADS [Concomitant]
     Indication: SKIN WRINKLING
     Dosage: UNK
     Route: 065
     Dates: start: 20161215, end: 20161215
  15. HYPERACTIVE THYROID MEDICATION [Concomitant]
     Indication: HYPERTHYROIDISM
     Dosage: UNK
     Route: 048

REACTIONS (17)
  - Suture related complication [Not Recovered/Not Resolved]
  - Nail disorder [Not Recovered/Not Resolved]
  - Abnormal faeces [Not Recovered/Not Resolved]
  - Rash [Not Recovered/Not Resolved]
  - Secretion discharge [Not Recovered/Not Resolved]
  - Off label use [Unknown]
  - Ageusia [Not Recovered/Not Resolved]
  - Nasal congestion [Not Recovered/Not Resolved]
  - Crying [Not Recovered/Not Resolved]
  - Dysphagia [Not Recovered/Not Resolved]
  - Alopecia [Not Recovered/Not Resolved]
  - Eye swelling [Not Recovered/Not Resolved]
  - Poor peripheral circulation [Unknown]
  - Taste disorder [Not Recovered/Not Resolved]
  - Skin discolouration [Not Recovered/Not Resolved]
  - Skin disorder [Not Recovered/Not Resolved]
  - Tooth loss [Not Recovered/Not Resolved]

NARRATIVE: CASE EVENT DATE: 2016
